FAERS Safety Report 8944161 (Version 1)
Quarter: 2012Q4

REPORT INFORMATION
  Report Type: 
  Country: IT (occurrence: IT)
  Receive Date: 20121204
  Receipt Date: 20121204
  Transmission Date: 20130627
  Serious: Yes (Hospitalization)
  Sender: FDA-Public Use
  Company Number: IT-ELI_LILLY_AND_COMPANY-IT201211006601

PATIENT
  Age: 31 Year
  Sex: Female

DRUGS (4)
  1. PROZAC [Suspect]
     Dosage: 30 mg, unknown
     Dates: start: 20121101, end: 20121101
  2. ALPRAZOLAM [Concomitant]
     Dosage: 350 mg, unknown
     Route: 048
     Dates: start: 20121101, end: 20121101
  3. SODIUM VALPROATE [Concomitant]
     Dosage: 100 mg, unknown
     Route: 048
     Dates: start: 20121101, end: 20121101
  4. DIAZEPAM [Concomitant]
     Dosage: 14 Gtt, unknown
     Route: 048
     Dates: start: 20121101, end: 20121101

REACTIONS (2)
  - Drug abuse [Recovering/Resolving]
  - Sopor [Recovering/Resolving]
